FAERS Safety Report 8372754-3 (Version None)
Quarter: 2012Q2

REPORT INFORMATION
  Report Type: 
  Country: None (occurrence: None)
  Receive Date: 20120521
  Receipt Date: 20120514
  Transmission Date: 20120825
  Serious: Yes (Death)
  Sender: FDA-Public Use
  Company Number: JP-ASTELLAS-2012JP004295

PATIENT
  Age: 68 Year
  Sex: Female

DRUGS (3)
  1. PROGRAF [Suspect]
     Indication: INTERSTITIAL LUNG DISEASE
  2. METHYLPREDNISOLONE [Concomitant]
     Route: 065
  3. PROGRAF [Suspect]
     Indication: DERMATOMYOSITIS
     Route: 065

REACTIONS (1)
  - DRUG INEFFECTIVE FOR UNAPPROVED INDICATION [None]
